FAERS Safety Report 4480343-6 (Version None)
Quarter: 2004Q3

REPORT INFORMATION
  Report Type: 
  Country: None (occurrence: None)
  Receive Date: 20040923
  Receipt Date: 20040714
  Transmission Date: 20050211
  Serious: No
  Sender: FDA-Public Use
  Company Number: USA040567883

PATIENT
  Age: 81 Year
  Sex: Female
  Weight: 66 kg

DRUGS (5)
  1. FORTEO [Suspect]
     Indication: OSTEOPOROSIS
     Dosage: 20 UG DAY
     Dates: start: 20040407
  2. CELEBREX [Concomitant]
  3. PREVACID [Concomitant]
  4. CALCIUM [Concomitant]
  5. FOSAMAX [Concomitant]

REACTIONS (12)
  - ASTHENIA [None]
  - BREAST PAIN [None]
  - CONDITION AGGRAVATED [None]
  - DEFAECATION URGENCY [None]
  - DIARRHOEA [None]
  - HEART RATE INCREASED [None]
  - INITIAL INSOMNIA [None]
  - INJECTION SITE VESICLES [None]
  - MUSCLE CRAMP [None]
  - OEDEMA PERIPHERAL [None]
  - PAIN IN EXTREMITY [None]
  - PALPITATIONS [None]
